FAERS Safety Report 8773191 (Version 1)
Quarter: 2012Q4

REPORT INFORMATION
  Report Type: 
  Country: US (occurrence: US)
  Receive Date: 20120907
  Receipt Date: 20120907
  Transmission Date: 20130627
  Serious: Yes (Other)
  Sender: FDA-Public Use
  Company Number: CHPA2012US019231

PATIENT
  Sex: Female

DRUGS (1)
  1. ALPHA-KERI MOISTURE RICH OIL [Suspect]
     Indication: BLISTER
     Dosage: Unk, Unk
     Route: 061

REACTIONS (3)
  - Hip fracture [Unknown]
  - Therapeutic response unexpected [Unknown]
  - Off label use [Unknown]
